FAERS Safety Report 25838499 (Version 2)
Quarter: 2025Q4

REPORT INFORMATION
  Report Type: Spontaneous
  Country: US (occurrence: US)
  Receive Date: 20250923
  Receipt Date: 20251010
  Transmission Date: 20260118
  Serious: Yes (Hospitalization, Other)
  Sender: TEVA
  Company Number: US-TEVA-VS-3374261

PATIENT
  Age: 56 Year
  Sex: Female

DRUGS (3)
  1. POTASSIUM CHLORIDE [Suspect]
     Active Substance: POTASSIUM CHLORIDE
     Indication: Hypokalaemia
     Route: 065
  2. PEMBROLIZUMAB [Suspect]
     Active Substance: PEMBROLIZUMAB
     Indication: Breast cancer
     Route: 065
  3. UNSPECIFIED INGREDIENT [Suspect]
     Active Substance: UNSPECIFIED INGREDIENT
     Indication: Adrenal insufficiency
     Dosage: HIGH DOSES
     Route: 065

REACTIONS (6)
  - Adrenal insufficiency [Recovering/Resolving]
  - Hypokalaemia [Recovering/Resolving]
  - Drug ineffective [Unknown]
  - Euglycaemic diabetic ketoacidosis [Recovering/Resolving]
  - Starvation ketoacidosis [Recovering/Resolving]
  - Hyperglycaemia [Recovering/Resolving]
